FAERS Safety Report 17626546 (Version 3)
Quarter: 2020Q3

REPORT INFORMATION
  Report Type: Spontaneous
  Country: JP (occurrence: JP)
  Receive Date: 20200404
  Receipt Date: 20200711
  Transmission Date: 20201102
  Serious: Yes (Hospitalization, Other)
  Sender: FDA-Public Use
  Company Number: JP-MACLEODS PHARMACEUTICALS US LTD-MAC2020026012

PATIENT

DRUGS (7)
  1. HEPARIN SODIUM. [Concomitant]
     Active Substance: HEPARIN SODIUM
     Indication: PRODUCT USED FOR UNKNOWN INDICATION
     Dosage: UNK, NASOGASTRIC TUBE
     Route: 045
  2. APIXABAN [Concomitant]
     Active Substance: APIXABAN
     Indication: PRODUCT USED FOR UNKNOWN INDICATION
     Dosage: 5 MILLIGRAM, QD, NASOGASTRIC TUBE
     Route: 045
  3. AMANTADINE. [Interacting]
     Active Substance: AMANTADINE HYDROCHLORIDE
     Indication: CEREBRAL INFARCTION
  4. EDARAVONE [Concomitant]
     Active Substance: EDARAVONE
     Indication: PRODUCT USED FOR UNKNOWN INDICATION
     Dosage: UNK, NASOGASTRIC TUBE
     Route: 045
  5. AMANTADINE. [Interacting]
     Active Substance: AMANTADINE HYDROCHLORIDE
     Indication: ABULIA
     Dosage: 150 MILLIGRAM, QD
     Route: 065
     Dates: start: 20180626, end: 20180718
  6. DONEPEZIL. [Suspect]
     Active Substance: DONEPEZIL
     Indication: DEMENTIA ALZHEIMER^S TYPE
     Dosage: 3 MILLIGRAM, QD ON THE 16TH DAY, (7DAYS)
     Route: 048
     Dates: start: 20180629, end: 20180707
  7. DONEPEZIL. [Interacting]
     Active Substance: DONEPEZIL
     Indication: ABULIA
     Dosage: 5 MILLIGRAM, QD, ON THE 24TH DAY
     Route: 048
     Dates: start: 20180708, end: 20180712

REACTIONS (11)
  - Paratonia [Recovered/Resolved]
  - Drug level increased [Recovered/Resolved]
  - Tachycardia [Recovered/Resolved]
  - Extrapyramidal disorder [Recovered/Resolved]
  - Drug interaction [Not Recovered/Not Resolved]
  - Myoclonus [Recovered/Resolved]
  - Dyskinesia [Recovered/Resolved]
  - Toxicity to various agents [Recovered/Resolved]
  - Musculoskeletal stiffness [Recovered/Resolved]
  - Pyrexia [Recovered/Resolved]
  - Overdose [Recovered/Resolved]

NARRATIVE: CASE EVENT DATE: 20180626
